FAERS Safety Report 17326944 (Version 1)
Quarter: 2020Q1

REPORT INFORMATION
  Report Type: Spontaneous
  Country: US (occurrence: US)
  Receive Date: 20200127
  Receipt Date: 20200127
  Transmission Date: 20200409
  Serious: No
  Sender: FDA-Public Use
  Company Number: US-REGENERON PHARMACEUTICALS, INC.-2019-36689

PATIENT

DRUGS (3)
  1. EYLEA [Suspect]
     Active Substance: AFLIBERCEPT
     Indication: CHORIORETINITIS
  2. EYLEA [Suspect]
     Active Substance: AFLIBERCEPT
     Indication: OPTIC NERVE DISORDER
  3. EYLEA [Suspect]
     Active Substance: AFLIBERCEPT
     Indication: RETINAL NEOVASCULARISATION
     Dosage: 1 MG, UNK
     Route: 031

REACTIONS (2)
  - Underdose [Unknown]
  - Off label use [Unknown]
